FAERS Safety Report 5806211-2 (Version None)
Quarter: 2008Q3

REPORT INFORMATION
  Report Type: 
  Country: None (occurrence: None)
  Receive Date: 20080709
  Receipt Date: 20080709
  Transmission Date: 20090109
  Serious: Yes (Disabling)
  Sender: FDA-Public Use
  Company Number: None

PATIENT
  Sex: Female

DRUGS (2)
  1. 0.5% MARCAINE OR 0.5% SENSORCAINE BOTH LISTED [Suspect]
     Indication: JOINT DISLOCATION
     Dosage: 400 ML 4CC/ HOUR 014
     Dates: start: 20060922
  2. STRYKER PAIN PUMP [Concomitant]

REACTIONS (5)
  - BONE DISORDER [None]
  - CHONDROMALACIA [None]
  - SCAR [None]
  - SYNOVITIS [None]
  - TENDON RUPTURE [None]
